FAERS Safety Report 8165087-1 (Version None)
Quarter: 2012Q1

REPORT INFORMATION
  Report Type: 
  Country: None (occurrence: None)
  Receive Date: 20120227
  Receipt Date: 20120215
  Transmission Date: 20120608
  Serious: Yes (Other)
  Sender: FDA-Public Use
  Company Number: ES-AMGEN-ESPSP2012010684

PATIENT
  Age: 52 Year
  Sex: Female
  Weight: 80 kg

DRUGS (11)
  1. IBUPROFEN [Concomitant]
     Indication: PAIN
     Dosage: IF NEEDED
     Route: 048
  2. ZYTRAM [Concomitant]
     Indication: PAIN
     Dosage: 1 DF, 1X/DAY
     Route: 048
  3. GELOCATIL [Concomitant]
     Indication: PAIN
     Dosage: 1 DF, 3X/DAY
  4. HYDROCHLOROTHIAZIDE [Concomitant]
     Indication: PAIN
     Dosage: 20 MG, 1X/DAY
     Route: 048
  5. ALPRAZOLAM [Concomitant]
     Indication: INSOMNIA
     Dosage: UNK
  6. DEPRAX                             /00447702/ [Concomitant]
     Indication: DEPRESSION
     Dosage: 1 DF, 1X/DAY
     Route: 048
  7. DEPRAX                             /00447702/ [Concomitant]
     Indication: INSOMNIA
     Dosage: UNK
  8. ALPRAZOLAM [Concomitant]
     Indication: DEPRESSION
     Dosage: 1 DF, 2X/DAY
     Route: 048
  9. ENBREL [Suspect]
     Indication: ANKYLOSING SPONDYLITIS
     Dosage: 50 MG, WEEKLY
     Route: 058
     Dates: start: 20120105, end: 20120209
  10. LYRICA [Concomitant]
     Indication: PAIN
     Dosage: 1 DF, 2X/DAY
     Route: 048
  11. TRAMADOL HCL [Concomitant]
     Indication: PAIN
     Dosage: 1 DF, 1X/DAY
     Route: 048

REACTIONS (8)
  - INJECTION SITE INFLAMMATION [None]
  - INJECTION SITE REACTION [None]
  - FATIGUE [None]
  - INJECTION SITE PAIN [None]
  - INJECTION SITE VESICLES [None]
  - DYSPEPSIA [None]
  - RHINITIS [None]
  - URINARY TRACT INFECTION [None]
